FAERS Safety Report 4503705-7 (Version None)
Quarter: 2004Q3

REPORT INFORMATION
  Report Type: 
  Country: None (occurrence: None)
  Receive Date: 20040928
  Receipt Date: 20040608
  Transmission Date: 20050211
  Serious: No
  Sender: FDA-Public Use
  Company Number: 04P-163-0263222-00

PATIENT
  Age: 72 Year
  Sex: Male
  Weight: 81.6475 kg

DRUGS (7)
  1. HUMIRA [Suspect]
     Indication: RHEUMATOID ARTHRITIS
     Dosage: 40 MG, 1 IN 2 WK, SUBCUTANEOUS
     Route: 058
     Dates: start: 20040201
  2. METHOTREXATE [Suspect]
     Indication: RHEUMATOID ARTHRITIS
     Dosage: 0.5 MG, 1 IN 1 WK, INJECTION
  3. VEXTRA [Concomitant]
  4. PREDNISONE [Concomitant]
  5. MULTIVITAMIN [Concomitant]
  6. ASPIRIN [Concomitant]
  7. FOLIC ACID [Concomitant]

REACTIONS (2)
  - CONTUSION [None]
  - INJECTION SITE NODULE [None]
